FAERS Safety Report 8327403-7 (Version None)
Quarter: 2012Q2

REPORT INFORMATION
  Report Type: 
  Country: None (occurrence: None)
  Receive Date: 20120430
  Receipt Date: 20120422
  Transmission Date: 20120825
  Serious: Yes (Death, Life-Threatening, Disabling)
  Sender: FDA-Public Use
  Company Number: 2012SP021547

PATIENT
  Age: 50 Year
  Sex: Female

DRUGS (5)
  1. LAMICTAL [Concomitant]
  2. VYVANSE [Concomitant]
  3. GABAPENTIN [Concomitant]
  4. SAPHRIS [Suspect]
     Indication: BIPOLAR DISORDER
     Dosage: 20 MG;QD;SL
     Route: 060
     Dates: start: 20091201
  5. CLONAZEPAM [Concomitant]

REACTIONS (1)
  - CHOKING [None]
